FAERS Safety Report 15031473 (Version 1)
Quarter: 2018Q2

REPORT INFORMATION
  Report Type: Spontaneous
  Country: US (occurrence: US)
  Receive Date: 20180619
  Receipt Date: 20180619
  Transmission Date: 20180711
  Serious: No
  Sender: FDA-Public Use
  Company Number: US-ACTELION-A-US2018-173812

PATIENT
  Age: 65 Year
  Sex: Female

DRUGS (1)
  1. VELETRI [Suspect]
     Active Substance: EPOPROSTENOL
     Indication: PULMONARY ARTERIAL HYPERTENSION
     Dosage: 16.85 NG/KG, PER MIN
     Route: 042
     Dates: start: 20180518

REACTIONS (7)
  - Headache [Unknown]
  - Liver disorder [Not Recovered/Not Resolved]
  - Fluid retention [Unknown]
  - Paracentesis [Unknown]
  - Nausea [Unknown]
  - Dyspnoea [Unknown]
  - Pain in jaw [Unknown]
